FAERS Safety Report 24438315 (Version 1)
Quarter: 2024Q4

REPORT INFORMATION
  Report Type: Other
  Country: US (occurrence: US)
  Receive Date: 20241015
  Receipt Date: 20241015
  Transmission Date: 20250115
  Serious: Yes (Life-Threatening)
  Sender: B BRAUN
  Company Number: US-B.Braun Medical Inc.-2163073

PATIENT
  Age: 29 Year
  Sex: Male

DRUGS (12)
  1. CEFEPIME HYDROCHLORIDE [Suspect]
     Active Substance: CEFEPIME HYDROCHLORIDE
     Indication: Toxic shock syndrome
  2. CEFEPIME HYDROCHLORIDE [Suspect]
     Active Substance: CEFEPIME HYDROCHLORIDE
     Indication: Pharyngitis streptococcal
  3. CEFTRIAXONE [Suspect]
     Active Substance: CEFTRIAXONE
  4. Intravenous immunoglobulin therapy [Concomitant]
  5. CLINDAMYCIN [Concomitant]
     Active Substance: CLINDAMYCIN
  6. Several unspecified vasopressors [Concomitant]
  7. SODIUM BICARBONATE [Concomitant]
     Active Substance: SODIUM BICARBONATE
  8. MICAFUNGIN [Suspect]
     Active Substance: MICAFUNGIN SODIUM
  9. MEROPENEM [Suspect]
     Active Substance: MEROPENEM
  10. VANCOMYCIN [Suspect]
     Active Substance: VANCOMYCIN
  11. AZITHROMYCIN [Suspect]
     Active Substance: AZITHROMYCIN
  12. METRONIDAZOLE [Suspect]
     Active Substance: METRONIDAZOLE

REACTIONS (1)
  - Drug ineffective [Unknown]
